FAERS Safety Report 22965125 (Version 3)
Quarter: 2023Q4

REPORT INFORMATION
  Report Type: Report from Study
  Country: CA (occurrence: CA)
  Receive Date: 20230921
  Receipt Date: 20231003
  Transmission Date: 20240110
  Serious: Yes (Other)
  Sender: FDA-Public Use
  Company Number: CA-BoehringerIngelheim-2023-BI-259009

PATIENT
  Age: 87 Year
  Sex: Male

DRUGS (1)
  1. SPEVIGO [Suspect]
     Active Substance: SPESOLIMAB-SBZO
     Indication: Pustular psoriasis
     Dosage: 900MG
     Route: 042
     Dates: start: 20230828

REACTIONS (19)
  - Cerebrovascular accident [Unknown]
  - Lip disorder [Not Recovered/Not Resolved]
  - Oral discomfort [Not Recovered/Not Resolved]
  - Underdose [Unknown]
  - Arthritis [Not Recovered/Not Resolved]
  - Fatigue [Unknown]
  - Muscular weakness [Unknown]
  - Incorrect dose administered [Unknown]
  - Skin exfoliation [Not Recovered/Not Resolved]
  - Wound [Not Recovered/Not Resolved]
  - Vein disorder [Unknown]
  - Decreased appetite [Not Recovered/Not Resolved]
  - Dysphagia [Not Recovered/Not Resolved]
  - Hypercalcaemia [Unknown]
  - Procedural complication [Unknown]
  - Pruritus [Not Recovered/Not Resolved]
  - Skin haemorrhage [Not Recovered/Not Resolved]
  - Skin atrophy [Unknown]
  - Haemorrhagic diathesis [Unknown]

NARRATIVE: CASE EVENT DATE: 20230101
